FAERS Safety Report 9060616 (Version 2)
Quarter: 2013Q2

REPORT INFORMATION
  Report Type: Spontaneous
  Country: US (occurrence: US)
  Receive Date: 20130212
  Receipt Date: 20130424
  Transmission Date: 20140414
  Serious: No
  Sender: FDA-Public Use
  Company Number: US-ASTRAZENECA-2011SE23140

PATIENT
  Age: 49 Year
  Sex: Male

DRUGS (4)
  1. SEROQUEL [Suspect]
     Route: 048
  2. SEROQUEL [Suspect]
     Route: 048
  3. NEXIUM [Suspect]
     Route: 048
  4. PANTOPRAZOLE [Suspect]
     Route: 048

REACTIONS (4)
  - Insomnia [Unknown]
  - Drug name confusion [Unknown]
  - Drug ineffective [Unknown]
  - Intentional drug misuse [Unknown]
